FAERS Safety Report 8536553-1 (Version None)
Quarter: 2012Q3

REPORT INFORMATION
  Report Type: 
  Country: None (occurrence: None)
  Receive Date: 20120725
  Receipt Date: 20120716
  Transmission Date: 20120928
  Serious: Yes (Hospitalization)
  Sender: FDA-Public Use
  Company Number: BR-ASTRAZENECA-2012SE49869

PATIENT
  Sex: Female

DRUGS (5)
  1. LOVAZA [Concomitant]
     Route: 048
  2. BRILINTA [Suspect]
     Indication: CORONARY ARTERY OCCLUSION
     Route: 048
     Dates: start: 20120201
  3. AMLODIPINE BESYLATE [Concomitant]
  4. ASPIRIN PREVENT [Concomitant]
  5. ATENOLOL [Suspect]
     Indication: HYPERTENSION
     Route: 048

REACTIONS (3)
  - CORONARY ARTERY OCCLUSION [None]
  - SKIN DISCOLOURATION [None]
  - OFF LABEL USE [None]
